FAERS Safety Report 4529530-9 (Version None)
Quarter: 2004Q4

REPORT INFORMATION
  Report Type: 
  Country: None (occurrence: None)
  Receive Date: 20041216
  Receipt Date: 20041109
  Transmission Date: 20050328
  Serious: Yes (Hospitalization, Disabling, Other)
  Sender: FDA-Public Use
  Company Number: US-MERCK-0411USA01730

PATIENT
  Age: 79 Year
  Sex: Female

DRUGS (6)
  1. FOSAMAX [Suspect]
     Indication: OSTEOPOROSIS
     Route: 048
     Dates: start: 20041001, end: 20041102
  2. FOSAMAX [Suspect]
     Indication: OSTEOPENIA
     Route: 048
     Dates: start: 20041001, end: 20041102
  3. ALEVE [Suspect]
     Route: 065
     Dates: end: 20041101
  4. SYNTHROID [Concomitant]
     Indication: HYPOTHYROIDISM
     Route: 065
  5. TOPROL-XL [Concomitant]
     Indication: PALPITATIONS
     Route: 065
  6. CORTICOSTEROIDS (UNSPECIFIED) [Concomitant]
     Indication: ARTHRITIS
     Route: 051
     Dates: start: 20040101

REACTIONS (7)
  - CHOLELITHIASIS [None]
  - GENERALISED OEDEMA [None]
  - HYPERSENSITIVITY [None]
  - OEDEMA PERIPHERAL [None]
  - PANCREATITIS [None]
  - PARAESTHESIA ORAL [None]
  - PITTING OEDEMA [None]
